FAERS Safety Report 5282159-X (Version None)
Quarter: 2007Q1

REPORT INFORMATION
  Report Type: 
  Country: None (occurrence: None)
  Receive Date: 20070330
  Receipt Date: 20070321
  Transmission Date: 20070707
  Serious: Yes (Other)
  Sender: FDA-Public Use
  Company Number: US-PFIZER INC-2007006047

PATIENT
  Sex: Male

DRUGS (1)
  1. LIPITOR [Suspect]

REACTIONS (14)
  - AMNESIA [None]
  - ARTERIAL STENOSIS LIMB [None]
  - ATTENTION DEFICIT/HYPERACTIVITY DISORDER [None]
  - COGNITIVE DISORDER [None]
  - CORONARY ARTERY DISEASE [None]
  - DEPRESSION [None]
  - DISORIENTATION [None]
  - FEMORAL ARTERIAL STENOSIS [None]
  - MUSCLE SPASMS [None]
  - MYOPATHY [None]
  - NEUROPATHY PERIPHERAL [None]
  - PAIN IN EXTREMITY [None]
  - SPEECH DISORDER [None]
  - TINNITUS [None]
